FAERS Safety Report 19020843 (Version 1)
Quarter: 2021Q1

REPORT INFORMATION
  Report Type: Spontaneous
  Country: US (occurrence: US)
  Receive Date: 20210317
  Receipt Date: 20210317
  Transmission Date: 20210420
  Serious: No
  Sender: FDA-Public Use
  Company Number: US-AMGEN-USASP2021039231

PATIENT
  Age: 76 Year
  Sex: Male

DRUGS (1)
  1. REPATHA [Suspect]
     Active Substance: EVOLOCUMAB
     Indication: BLOOD CHOLESTEROL INCREASED
     Dosage: 140 MILLIGRAM, Q2WK
     Route: 065
     Dates: start: 20210301, end: 20210301

REACTIONS (6)
  - Pain [Recovered/Resolved]
  - Hypertension [Recovered/Resolved]
  - Insomnia [Recovered/Resolved]
  - Blood glucose increased [Recovered/Resolved]
  - Restlessness [Recovered/Resolved]
  - Peripheral swelling [Recovered/Resolved]

NARRATIVE: CASE EVENT DATE: 20210301
